FAERS Safety Report 5122979-5 (Version None)
Quarter: 2006Q4

REPORT INFORMATION
  Report Type: 
  Country: None (occurrence: None)
  Receive Date: 20061005
  Receipt Date: 20061005
  Transmission Date: 20070319
  Serious: Yes (Death)
  Sender: FDA-Public Use
  Company Number: None

PATIENT
  Sex: Male
  Weight: 67.2 kg

DRUGS (2)
  1. CISPLATIN [Suspect]
     Dosage: 36 MG
  2. CAMPTOSAR [Suspect]
     Dosage: 89 MG

REACTIONS (2)
  - HAEMOPTYSIS [None]
  - PYREXIA [None]
